FAERS Safety Report 7602035-4 (Version None)
Quarter: 2011Q3

REPORT INFORMATION
  Report Type: 
  Country: None (occurrence: None)
  Receive Date: 20110711
  Receipt Date: 20110628
  Transmission Date: 20111222
  Serious: Yes (Other)
  Sender: FDA-Public Use
  Company Number: US-PFIZER INC-2011119112

PATIENT
  Sex: Female
  Weight: 77 kg

DRUGS (2)
  1. XALATAN [Suspect]
     Indication: GLAUCOMA
     Dosage: 1 GTT IN EACH EYE, UNK
     Route: 047
     Dates: start: 20070101, end: 20110301
  2. ASPIRIN [Concomitant]
     Dosage: 81 MG, UNK

REACTIONS (5)
  - INTRAOCULAR PRESSURE INCREASED [None]
  - DEPRESSION [None]
  - INSOMNIA [None]
  - DIABETES MELLITUS [None]
  - DRUG INEFFECTIVE [None]
